FAERS Safety Report 13733193 (Version 1)
Quarter: 2017Q3

REPORT INFORMATION
  Report Type: Spontaneous
  Country: US (occurrence: US)
  Receive Date: 20170707
  Receipt Date: 20170707
  Transmission Date: 20171127
  Serious: No
  Sender: FDA-Public Use
  Company Number: US-ROCHE-1057726

PATIENT
  Sex: Female

DRUGS (1)
  1. CYTOVENE IV [Suspect]
     Active Substance: GANCICLOVIR SODIUM
     Indication: CYTOMEGALOVIRUS INFECTION
     Route: 042

REACTIONS (1)
  - Neutrophil count decreased [Unknown]
